FAERS Safety Report 10223005 (Version 3)
Quarter: 2014Q3

REPORT INFORMATION
  Report Type: Spontaneous
  Country: JP (occurrence: JP)
  Receive Date: 20140607
  Receipt Date: 20140717
  Transmission Date: 20150326
  Serious: Yes (Other)
  Sender: FDA-Public Use
  Company Number: PHJP2014JP000839

PATIENT
  Age: 32 Year
  Sex: Female

DRUGS (3)
  1. TEGRETOL [Suspect]
     Active Substance: CARBAMAZEPINE
     Dosage: 800 MG, UNK
     Route: 048
  2. TEGRETOL [Suspect]
     Active Substance: CARBAMAZEPINE
     Dosage: 400 MG, UNK
     Route: 048
  3. TEGRETOL [Suspect]
     Active Substance: CARBAMAZEPINE
     Dosage: 600 MG, UNK
     Route: 048
     Dates: start: 20121227

REACTIONS (4)
  - Breech presentation [Unknown]
  - Convulsion [Recovered/Resolved]
  - Normal newborn [Unknown]
  - Exposure during pregnancy [Unknown]

NARRATIVE: CASE EVENT DATE: 20130309
